FAERS Safety Report 12300137 (Version 2)
Quarter: 2016Q3

REPORT INFORMATION
  Report Type: Spontaneous
  Country: US (occurrence: US)
  Receive Date: 20160425
  Receipt Date: 20160713
  Transmission Date: 20161109
  Serious: No
  Sender: FDA-Public Use
  Company Number: US-009507513-1604USA009189

PATIENT
  Age: 18 Year
  Sex: Female
  Weight: 72.56 kg

DRUGS (3)
  1. NEXPLANON [Suspect]
     Active Substance: ETONOGESTREL
     Indication: CONTRACEPTION
     Dosage: 1 ROD/ 3 YEARS; LEFT ARM
     Route: 059
     Dates: start: 20140929, end: 20160421
  2. RISPERDAL [Concomitant]
     Active Substance: RISPERIDONE
     Dosage: 1 MG/ONCE AT NIGHT TIME
  3. VITAMIN D [Concomitant]
     Active Substance: CHOLECALCIFEROL
     Dosage: 50.0000 UNITS TWICE A WEEK

REACTIONS (4)
  - Polymenorrhoea [Not Recovered/Not Resolved]
  - Menometrorrhagia [Recovered/Resolved]
  - Menometrorrhagia [Recovered/Resolved]
  - Hepatic enzyme abnormal [Unknown]

NARRATIVE: CASE EVENT DATE: 201410
